FAERS Safety Report 6650596-4 (Version None)
Quarter: 2010Q1

REPORT INFORMATION
  Report Type: 
  Country: None (occurrence: None)
  Receive Date: 20100325
  Receipt Date: 20100309
  Transmission Date: 20100710
  Serious: No
  Sender: FDA-Public Use
  Company Number: US-BIOGENIDEC-2010BI007847

PATIENT
  Age: 24 Year
  Sex: Female

DRUGS (2)
  1. AVONEX [Suspect]
     Indication: MULTIPLE SCLEROSIS
     Route: 030
     Dates: start: 20070101, end: 20080101
  2. AVONEX [Suspect]
     Route: 030

REACTIONS (5)
  - FEELING HOT [None]
  - GINGIVAL PAIN [None]
  - NASAL CONGESTION [None]
  - NASOPHARYNGITIS [None]
  - TOOTH DISORDER [None]
